FAERS Safety Report 20095914 (Version 1)
Quarter: 2021Q4

REPORT INFORMATION
  Report Type: Spontaneous
  Country: US (occurrence: US)
  Receive Date: 20211122
  Receipt Date: 20211122
  Transmission Date: 20220303
  Serious: No
  Sender: FDA-Public Use
  Company Number: US-00021

PATIENT
  Age: 82 Year
  Sex: Female

DRUGS (1)
  1. PEPAXTO [Suspect]
     Active Substance: MELPHALAN FLUFENAMIDE
     Indication: Plasma cell myeloma
     Route: 042
     Dates: start: 20210420

REACTIONS (6)
  - Poor quality sleep [Recovering/Resolving]
  - Nausea [Not Recovered/Not Resolved]
  - Headache [Recovering/Resolving]
  - Asthenia [Unknown]
  - White blood cell count decreased [Not Recovered/Not Resolved]
  - Retching [Not Recovered/Not Resolved]

NARRATIVE: CASE EVENT DATE: 20210420
